FAERS Safety Report 15635787 (Version 1)
Quarter: 2018Q4

REPORT INFORMATION
  Report Type: Spontaneous
  Country: KR (occurrence: KR)
  Receive Date: 20181120
  Receipt Date: 20181120
  Transmission Date: 20190205
  Serious: Yes (Other)
  Sender: FDA-Public Use
  Company Number: KR-ROCHE-2216719

PATIENT
  Age: 69 Year
  Sex: Male

DRUGS (1)
  1. ACTILYSE [Suspect]
     Active Substance: ALTEPLASE
     Indication: CEREBRAL DISORDER
     Route: 042

REACTIONS (3)
  - Depressed level of consciousness [Recovered/Resolved]
  - Speech disorder [Recovered/Resolved]
  - Hemiplegia [Recovered/Resolved]
